FAERS Safety Report 6055530-6 (Version None)
Quarter: 2009Q1

REPORT INFORMATION
  Report Type: 
  Country: None (occurrence: None)
  Receive Date: 20090128
  Receipt Date: 20090121
  Transmission Date: 20090719
  Serious: Yes (Other)
  Sender: FDA-Public Use
  Company Number: B0544873A

PATIENT
  Age: 76 Year
  Sex: Male

DRUGS (7)
  1. SERETIDE [Suspect]
     Indication: ASTHMA
     Dosage: 2PUFF TWICE PER DAY
     Route: 055
     Dates: start: 20070101
  2. ATROVENT [Suspect]
     Route: 055
  3. MONTELUKAST SODIUM [Suspect]
     Indication: ASTHMA
     Route: 048
  4. ALLOPURINOL [Suspect]
     Indication: GOUT
     Route: 048
  5. ENALAPRIL MALEATE [Suspect]
     Indication: HYPERTENSION
     Route: 065
  6. VENTOLIN [Suspect]
     Indication: DRUG USE FOR UNKNOWN INDICATION
     Route: 065
  7. COMBIVENT [Concomitant]
     Route: 055

REACTIONS (2)
  - ASTHMA [None]
  - DYSPNOEA [None]
